FAERS Safety Report 14605085 (Version 1)
Quarter: 2018Q1

REPORT INFORMATION
  Report Type: Spontaneous
  Country: US (occurrence: US)
  Receive Date: 20180306
  Receipt Date: 20180306
  Transmission Date: 20180509
  Serious: No
  Sender: FDA-Public Use
  Company Number: None

PATIENT
  Age: 64 Year
  Sex: Female
  Weight: 94 kg

DRUGS (16)
  1. NIRAPARIB [Suspect]
     Active Substance: NIRAPARIB
     Indication: OVARIAN CANCER
     Route: 048
  2. CALCIUM + VITAMIN D [Concomitant]
     Active Substance: CALCIUM\VITAMIN D
  3. ZOFRAN [Concomitant]
     Active Substance: ONDANSETRON HYDROCHLORIDE
  4. DEXILANT [Concomitant]
     Active Substance: DEXLANSOPRAZOLE
  5. ATENOLOL. [Concomitant]
     Active Substance: ATENOLOL
  6. WARFARIN [Concomitant]
     Active Substance: WARFARIN
  7. COMPAZINE [Concomitant]
     Active Substance: PROCHLORPERAZINE MALEATE
  8. NYSTATIN. [Concomitant]
     Active Substance: NYSTATIN
  9. GABAPENTIN. [Concomitant]
     Active Substance: GABAPENTIN
  10. ALBUTEROL. [Concomitant]
     Active Substance: ALBUTEROL
  11. VITAMIN B12 [Concomitant]
     Active Substance: CYANOCOBALAMIN
  12. CLARITIN [Concomitant]
     Active Substance: LORATADINE
  13. FLONASE [Concomitant]
     Active Substance: FLUTICASONE PROPIONATE
  14. PATADAY [Concomitant]
     Active Substance: OLOPATADINE HYDROCHLORIDE
  15. SYNTHROID [Concomitant]
     Active Substance: LEVOTHYROXINE SODIUM
  16. FAMOTIDINE. [Concomitant]
     Active Substance: FAMOTIDINE

REACTIONS (1)
  - Raynaud^s phenomenon [None]

NARRATIVE: CASE EVENT DATE: 20180306
